FAERS Safety Report 20864501 (Version 6)
Quarter: 2022Q3

REPORT INFORMATION
  Report Type: Spontaneous
  Country: US (occurrence: US)
  Receive Date: 20220524
  Receipt Date: 20220706
  Transmission Date: 20221026
  Serious: Yes (Hospitalization, Other)
  Sender: FDA-Public Use
  Company Number: US-PFIZER INC-202200714373

PATIENT
  Age: 70 Year
  Sex: Female
  Weight: 44.45 kg

DRUGS (2)
  1. ACCUPRIL [Suspect]
     Active Substance: QUINAPRIL HYDROCHLORIDE
     Indication: Hypertension
     Dosage: 20 MG, 2X/DAY
     Dates: start: 1997
  2. ACCUPRIL [Suspect]
     Active Substance: QUINAPRIL HYDROCHLORIDE
     Dosage: 1 DF, DAILY
     Dates: end: 202206

REACTIONS (6)
  - Cerebrovascular accident [Unknown]
  - Near death experience [Unknown]
  - Chronic lymphocytic leukaemia [Unknown]
  - Recalled product administered [Unknown]
  - Therapeutic response unexpected [Unknown]
  - Intentional product misuse [Unknown]

NARRATIVE: CASE EVENT DATE: 20110101
